FAERS Safety Report 8277757-5 (Version None)
Quarter: 2012Q2

REPORT INFORMATION
  Report Type: 
  Country: None (occurrence: None)
  Receive Date: 20120412
  Receipt Date: 20120406
  Transmission Date: 20120825
  Serious: Yes (Hospitalization)
  Sender: FDA-Public Use
  Company Number: US-B.I. PHARMACEUTICALS,INC./RIDGEFIELD-2012-BP-06507BP

PATIENT
  Age: 75 Year
  Sex: Male

DRUGS (1)
  1. DULCOLAX [Suspect]
     Indication: CONSTIPATION
     Route: 048
     Dates: start: 20120101

REACTIONS (1)
  - SMALL INTESTINAL OBSTRUCTION [None]
